FAERS Safety Report 6310342-0 (Version None)
Quarter: 2009Q3

REPORT INFORMATION
  Report Type: 
  Country: None (occurrence: None)
  Receive Date: 20090814
  Receipt Date: 20090813
  Transmission Date: 20100115
  Serious: Yes (Life-Threatening, Hospitalization)
  Sender: FDA-Public Use
  Company Number: PHHY2009FR33933

PATIENT
  Age: 83 Year
  Sex: Female

DRUGS (4)
  1. TAREG [Suspect]
     Indication: HYPERTENSION
     Dosage: 160 MG, QD
     Route: 048
     Dates: end: 20090714
  2. ALDACTONE [Suspect]
     Indication: HYPERTENSION
     Dosage: 25 MG, BID
     Route: 048
     Dates: end: 20090714
  3. ALDACTAZINE [Suspect]
     Indication: HYPERTENSION
     Dosage: 1 DF, QD
     Route: 048
     Dates: end: 20090714
  4. DIFFU K [Suspect]
     Dosage: 6 DF, QD
     Route: 048
     Dates: end: 20090714

REACTIONS (4)
  - BRADYCARDIA [None]
  - FALL [None]
  - HYPERKALAEMIA [None]
  - MUSCULAR WEAKNESS [None]
